FAERS Safety Report 11991928 (Version 1)
Quarter: 2016Q1

REPORT INFORMATION
  Report Type: Spontaneous
  Country: US (occurrence: US)
  Receive Date: 20160203
  Receipt Date: 20160203
  Transmission Date: 20160526
  Serious: No
  Sender: FDA-Public Use
  Company Number: US-JNJFOC-20151213098

PATIENT
  Age: 4 Month
  Sex: Female
  Weight: 6.8 kg

DRUGS (2)
  1. MOTRIN INFANTS [Suspect]
     Active Substance: IBUPROFEN
     Route: 048
  2. MOTRIN INFANTS [Suspect]
     Active Substance: IBUPROFEN
     Indication: PAIN
     Dosage: ONCE
     Route: 048
     Dates: start: 20151214

REACTIONS (4)
  - Product use issue [Unknown]
  - Off label use [Unknown]
  - Drug administration error [Unknown]
  - Drug administered to patient of inappropriate age [Unknown]

NARRATIVE: CASE EVENT DATE: 20151214
